FAERS Safety Report 16999907 (Version 1)
Quarter: 2019Q4

REPORT INFORMATION
  Report Type: Spontaneous
  Country: US (occurrence: US)
  Receive Date: 20191106
  Receipt Date: 20191106
  Transmission Date: 20200122
  Serious: Yes (Other)
  Sender: FDA-Public Use
  Company Number: US-AMGEN-USASP2019182871

PATIENT

DRUGS (2)
  1. SILTUXIMAB [Concomitant]
     Active Substance: SILTUXIMAB
     Indication: PLASMA CELL MYELOMA
     Dosage: 11 MILLIGRAM/KILOGRAM, (ON DAY -7 AND DAY +21 FROM AHCT)
  2. FILGRASTIM [Suspect]
     Active Substance: FILGRASTIM
     Indication: PRODUCT USED FOR UNKNOWN INDICATION
     Dosage: UNK
     Route: 065

REACTIONS (1)
  - Engraftment syndrome [Unknown]
